FAERS Safety Report 23917094 (Version 1)
Quarter: 2024Q2

REPORT INFORMATION
  Report Type: Spontaneous
  Country: US (occurrence: US)
  Receive Date: 20240529
  Receipt Date: 20240529
  Transmission Date: 20240715
  Serious: No
  Sender: FDA-Public Use
  Company Number: US-PERRIGO-24US004071

PATIENT
  Age: 64 Year
  Sex: Female
  Weight: 55.329 kg

DRUGS (3)
  1. MINOXIDIL [Suspect]
     Active Substance: MINOXIDIL
     Indication: Alopecia
     Dosage: 3 CAPFULS, QD
     Route: 061
     Dates: start: 202203, end: 20240422
  2. MINOXIDIL [Suspect]
     Active Substance: MINOXIDIL
     Dosage: UNKNOWN, QD
     Route: 061
     Dates: start: 202203, end: 20240422
  3. FOSAMAX [Concomitant]
     Active Substance: ALENDRONATE SODIUM
     Indication: Osteoporosis
     Dosage: UNK
     Route: 065
     Dates: start: 202204

REACTIONS (5)
  - Rosacea [Recovering/Resolving]
  - Photosensitivity reaction [Recovering/Resolving]
  - Temperature intolerance [Recovering/Resolving]
  - Overdose [Unknown]
  - Product administered at inappropriate site [Unknown]

NARRATIVE: CASE EVENT DATE: 20220301
